FAERS Safety Report 5308485-3 (Version None)
Quarter: 2007Q2

REPORT INFORMATION
  Report Type: 
  Country: None (occurrence: None)
  Receive Date: 20070423
  Receipt Date: 20070412
  Transmission Date: 20071010
  Serious: Yes (Other)
  Sender: FDA-Public Use
  Company Number: FABR-11934

PATIENT
  Sex: Female
  Weight: 87 kg

DRUGS (1)
  1. FABRAZYME [Suspect]
     Indication: FABRY'S DISEASE
     Dosage: 87 MG Q2WKS IV
     Route: 042
     Dates: start: 20031001

REACTIONS (1)
  - CARDIAC FAILURE CHRONIC [None]
